FAERS Safety Report 4710976-0 (Version None)
Quarter: 2005Q3

REPORT INFORMATION
  Report Type: 
  Country: None (occurrence: None)
  Receive Date: 20050711
  Receipt Date: 20050701
  Transmission Date: 20060218
  Serious: Yes (Hospitalization)
  Sender: FDA-Public Use
  Company Number: JP-BRISTOL-MYERS SQUIBB COMPANY-13023965

PATIENT
  Age: 81 Year
  Sex: Female

DRUGS (6)
  1. PARAPLATIN [Suspect]
     Indication: NON-HODGKIN'S LYMPHOMA
     Route: 042
     Dates: start: 20050411, end: 20050411
  2. VEPESID [Suspect]
     Indication: NON-HODGKIN'S LYMPHOMA
     Route: 042
     Dates: start: 20050411, end: 20050411
  3. RITUXAN [Concomitant]
     Indication: NON-HODGKIN'S LYMPHOMA
     Route: 042
     Dates: start: 20050411
  4. IFOSFAMIDE [Concomitant]
     Indication: NON-HODGKIN'S LYMPHOMA
     Dates: start: 20050411
  5. METHOTREXATE [Concomitant]
     Indication: NON-HODGKIN'S LYMPHOMA
     Dates: start: 20050411, end: 20050411
  6. METHYLPREDNISOLONE 16MG TAB [Concomitant]
     Indication: NON-HODGKIN'S LYMPHOMA
     Dates: start: 20050411

REACTIONS (1)
  - GASTRIC PERFORATION [None]
